FAERS Safety Report 11127749 (Version 2)
Quarter: 2015Q2

REPORT INFORMATION
  Report Type: Report from Study
  Country: US (occurrence: US)
  Receive Date: 20150521
  Receipt Date: 20150528
  Transmission Date: 20150821
  Serious: Yes (Hospitalization)
  Sender: FDA-Public Use
  Company Number: US-BIOGENIDEC-2015BI067642

PATIENT
  Age: 50 Year
  Sex: Female

DRUGS (1)
  1. TYSABRI [Suspect]
     Active Substance: NATALIZUMAB
     Indication: MULTIPLE SCLEROSIS
     Route: 042
     Dates: start: 20150309, end: 20150309

REACTIONS (3)
  - Multiple sclerosis relapse [Recovered/Resolved]
  - Multiple sclerosis [Unknown]
  - Joint stiffness [Recovered/Resolved]

NARRATIVE: CASE EVENT DATE: 201503
